FAERS Safety Report 12437554 (Version 2)
Quarter: 2016Q2

REPORT INFORMATION
  Report Type: Spontaneous
  Country: US (occurrence: US)
  Receive Date: 20160606
  Receipt Date: 20160607
  Transmission Date: 20160815
  Serious: No
  Sender: FDA-Public Use
  Company Number: US-BAYER-2016-109252

PATIENT
  Age: 78 Year
  Sex: Female
  Weight: 61.22 kg

DRUGS (2)
  1. MIRAFIBER CAPLETS [Suspect]
     Active Substance: CITRIC ACID MONOHYDRATE\METHYLCELLULOSE
     Indication: CONSTIPATION PROPHYLAXIS
     Dosage: 3 DF, UNK
     Route: 048
     Dates: start: 20160527
  2. MIRALAX [Suspect]
     Active Substance: POLYETHYLENE GLYCOL 3350
     Indication: CONSTIPATION PROPHYLAXIS
     Dosage: 1 DF, QD
     Route: 048
     Dates: start: 2008, end: 20160526

REACTIONS (1)
  - Product use issue [None]

NARRATIVE: CASE EVENT DATE: 2008
